FAERS Safety Report 9859170 (Version 2)
Quarter: 2014Q1

REPORT INFORMATION
  Report Type: Spontaneous
  Country: JP (occurrence: JP)
  Receive Date: 20140131
  Receipt Date: 20140225
  Transmission Date: 20141002
  Serious: Yes (Hospitalization)
  Sender: FDA-Public Use
  Company Number: JP-WATSON-2014-01516

PATIENT
  Age: 73 Year
  Sex: Male

DRUGS (3)
  1. RAPAFLO (WATSON LABORATORIES) [Suspect]
     Indication: DYSURIA
     Dosage: 4 MG, BID
     Route: 048
     Dates: end: 20131022
  2. RAPAFLO (WATSON LABORATORIES) [Suspect]
     Indication: BLADDER OUTLET OBSTRUCTION
  3. JANUVIA [Concomitant]
     Indication: PRODUCT USED FOR UNKNOWN INDICATION
     Dosage: 25 MG, UNKNOWN
     Route: 065

REACTIONS (3)
  - Viral rash [Recovered/Resolved]
  - Drug eruption [Recovered/Resolved]
  - Somnolence [Recovered/Resolved]
